FAERS Safety Report 10053630 (Version 1)
Quarter: 2014Q2

REPORT INFORMATION
  Report Type: Spontaneous
  Country: US (occurrence: US)
  Receive Date: 20140402
  Receipt Date: 20140402
  Transmission Date: 20141212
  Serious: No
  Sender: FDA-Public Use
  Company Number: US-PFIZER INC-2014092135

PATIENT
  Age: 6 Year
  Sex: Male

DRUGS (2)
  1. QUILLIVANT XR [Suspect]
     Indication: DISTURBANCE IN ATTENTION
     Dosage: 6 ML, 1X/DAY
     Dates: start: 2013
  2. METHYLPHENIDATE HYDROCHLORIDE [Suspect]
     Indication: DISTURBANCE IN ATTENTION
     Dosage: UNK
     Dates: start: 20140317, end: 201403

REACTIONS (1)
  - Insomnia [Unknown]
